FAERS Safety Report 24772972 (Version 1)
Quarter: 2024Q4

REPORT INFORMATION
  Report Type: Report from Study
  Country: CA (occurrence: CA)
  Receive Date: 20241225
  Receipt Date: 20241225
  Transmission Date: 20250115
  Serious: Yes (Hospitalization)
  Sender: ABBVIE
  Company Number: CA-ABBVIE-6060852

PATIENT
  Age: 15 Year
  Sex: Male

DRUGS (1)
  1. RINVOQ [Suspect]
     Active Substance: UPADACITINIB
     Indication: Crohn^s disease
     Route: 048
     Dates: start: 20240719

REACTIONS (2)
  - Ileostomy [Recovering/Resolving]
  - Colectomy [Recovering/Resolving]

NARRATIVE: CASE EVENT DATE: 20240101
